FAERS Safety Report 13021324 (Version 1)
Quarter: 2016Q4

REPORT INFORMATION
  Report Type: Spontaneous
  Country: US (occurrence: US)
  Receive Date: 20161213
  Receipt Date: 20161213
  Transmission Date: 20170207
  Serious: Yes (Hospitalization)
  Sender: FDA-Public Use
  Company Number: US-B.I. PHARMACEUTICALS,INC./RIDGEFIELD-2016-BI-084329

PATIENT
  Sex: Female

DRUGS (6)
  1. KLOR-CON [Concomitant]
     Active Substance: POTASSIUM CHLORIDE
     Indication: PRODUCT USED FOR UNKNOWN INDICATION
     Route: 048
  2. TAMSULOSIN-GENERIC [Concomitant]
     Indication: PROSTATOMEGALY
     Route: 048
     Dates: start: 2009
  3. PRADAXA [Suspect]
     Active Substance: DABIGATRAN ETEXILATE MESYLATE
     Indication: ATRIAL FIBRILLATION
     Route: 048
     Dates: start: 2010
  4. FOLIC ACID. [Concomitant]
     Active Substance: FOLIC ACID
     Indication: PRODUCT USED FOR UNKNOWN INDICATION
     Route: 048
  5. LOVASTATIN. [Concomitant]
     Active Substance: LOVASTATIN
     Indication: BLOOD CHOLESTEROL INCREASED
     Route: 048
  6. FINASTERIDE. [Concomitant]
     Active Substance: FINASTERIDE
     Indication: PROSTATOMEGALY
     Route: 048
     Dates: start: 2009

REACTIONS (6)
  - Cardiac failure congestive [Recovered/Resolved]
  - Dyspnoea [Recovered/Resolved]
  - Prostatomegaly [Recovered/Resolved]
  - Contusion [Not Recovered/Not Resolved]
  - Haemorrhage [Not Recovered/Not Resolved]
  - Laceration [Not Recovered/Not Resolved]

NARRATIVE: CASE EVENT DATE: 2010
